FAERS Safety Report 12471319 (Version 1)
Quarter: 2016Q2

REPORT INFORMATION
  Report Type: Spontaneous
  Country: US (occurrence: US)
  Receive Date: 20160616
  Receipt Date: 20160616
  Transmission Date: 20160815
  Serious: No
  Sender: FDA-Public Use
  Company Number: US-PFIZER INC-2016286952

PATIENT
  Age: 14 Year
  Sex: Male
  Weight: 141.5 kg

DRUGS (3)
  1. ZIPRASIDONE HCL [Suspect]
     Active Substance: ZIPRASIDONE HYDROCHLORIDE
     Indication: OPPOSITIONAL DEFIANT DISORDER
     Dosage: UNK
     Dates: start: 201603, end: 2016
  2. ARIPIPRAZOLE. [Suspect]
     Active Substance: ARIPIPRAZOLE
     Indication: OPPOSITIONAL DEFIANT DISORDER
     Dosage: UNK, 1X/DAY
     Route: 048
     Dates: start: 2014, end: 201603
  3. WELLBUTRIN [Concomitant]
     Active Substance: BUPROPION HYDROCHLORIDE
     Dosage: UNK

REACTIONS (2)
  - Product use issue [Unknown]
  - Aggression [Not Recovered/Not Resolved]
